FAERS Safety Report 4281681-2 (Version None)
Quarter: 2004Q1

REPORT INFORMATION
  Report Type: 
  Country: None (occurrence: None)
  Receive Date: 20040120
  Receipt Date: 20030728
  Transmission Date: 20041129
  Serious: Yes (Hospitalization)
  Sender: FDA-Public Use
  Company Number: BDI-005329

PATIENT
  Age: 59 Year
  Sex: Female
  Weight: 68 kg

DRUGS (1)
  1. PROHANCE [Suspect]
     Indication: NUCLEAR MAGNETIC RESONANCE IMAGING BRAIN
     Dosage: 17 ML ONCE IV
     Route: 042
     Dates: start: 20030724, end: 20030724

REACTIONS (4)
  - BLOOD POTASSIUM DECREASED [None]
  - OXYGEN SATURATION DECREASED [None]
  - SNEEZING [None]
  - SYNCOPE VASOVAGAL [None]
